FAERS Safety Report 5110956-X (Version None)
Quarter: 2006Q3

REPORT INFORMATION
  Report Type: 
  Country: None (occurrence: None)
  Receive Date: 20060920
  Receipt Date: 20060920
  Transmission Date: 20061208
  Serious: Yes (Hospitalization)
  Sender: FDA-Public Use
  Company Number: None

PATIENT
  Sex: Female

DRUGS (3)
  1. CLADRIBINE [Suspect]
     Indication: MALIGNANT MELANOMA
     Dosage: 0.12 MG/KG QD SQ #5
     Route: 058
     Dates: start: 20060712, end: 20060716
  2. LISINOPRIL [Concomitant]
  3. NORCO [Concomitant]

REACTIONS (5)
  - BLOOD BILIRUBIN INCREASED [None]
  - BLOOD GLUCOSE INCREASED [None]
  - COOMBS TEST POSITIVE [None]
  - HAEMOGLOBIN DECREASED [None]
  - RETICULOCYTE COUNT INCREASED [None]
